FAERS Safety Report 13334524 (Version 3)
Quarter: 2018Q1

REPORT INFORMATION
  Report Type: Spontaneous
  Country: US (occurrence: US)
  Receive Date: 20170314
  Receipt Date: 20180315
  Transmission Date: 20180508
  Serious: Yes (Other)
  Sender: FDA-Public Use
  Company Number: US-JNJFOC-20170226102

PATIENT
  Age: 84 Year
  Sex: Male

DRUGS (28)
  1. IMBRUVICA [Suspect]
     Active Substance: IBRUTINIB
     Indication: WALDENSTROM^S MACROGLOBULINAEMIA
     Route: 065
     Dates: start: 20170503, end: 20170814
  2. ATENOLOL. [Concomitant]
     Active Substance: ATENOLOL
  3. CLOPIDOGREL [Concomitant]
     Active Substance: CLOPIDOGREL BISULFATE
  4. SIMVASTATIN. [Concomitant]
     Active Substance: SIMVASTATIN
  5. UBIQUINOL [Concomitant]
     Active Substance: UBIQUINOL
     Dosage: 32% POWDER
  6. ALLOPURINOL. [Concomitant]
     Active Substance: ALLOPURINOL
  7. CENTRUM SILVER [Concomitant]
     Active Substance: MINERALS\VITAMINS
  8. NITROLINGUAL [Concomitant]
     Active Substance: NITROGLYCERIN
  9. LISINOPRIL. [Concomitant]
     Active Substance: LISINOPRIL
  10. NITROGLYCERIN. [Concomitant]
     Active Substance: NITROGLYCERIN
     Route: 060
  11. RANITIDINE. [Concomitant]
     Active Substance: RANITIDINE
  12. DOCUSATE CALCIUM. [Concomitant]
     Active Substance: DOCUSATE CALCIUM
  13. GLIMEPIRIDE. [Concomitant]
     Active Substance: GLIMEPIRIDE
  14. IMBRUVICA [Suspect]
     Active Substance: IBRUTINIB
     Indication: WALDENSTROM^S MACROGLOBULINAEMIA
     Route: 065
     Dates: start: 20170821, end: 20170921
  15. IMBRUVICA [Suspect]
     Active Substance: IBRUTINIB
     Indication: WALDENSTROM^S MACROGLOBULINAEMIA
     Route: 065
     Dates: end: 20180219
  16. IRON [Concomitant]
     Active Substance: IRON
  17. NIACIN. [Concomitant]
     Active Substance: NIACIN
  18. NITROGLYCERIN. [Concomitant]
     Active Substance: NITROGLYCERIN
     Route: 060
  19. IMBRUVICA [Suspect]
     Active Substance: IBRUTINIB
     Indication: WALDENSTROM^S MACROGLOBULINAEMIA
     Route: 065
     Dates: start: 20160606, end: 201701
  20. ASPIRIN. [Concomitant]
     Active Substance: ASPIRIN
  21. CYANOCOBALAMIN. [Concomitant]
     Active Substance: CYANOCOBALAMIN
  22. BIFIDOBACTERIUM LACTIS [Concomitant]
     Active Substance: BIFIDOBACTERIUM ANIMALIS LACTIS
  23. CENTRUM SILVER [Concomitant]
     Active Substance: MINERALS\VITAMINS
  24. LUTEIN ZEAXANTHIN [Concomitant]
  25. PROSCAR [Concomitant]
     Active Substance: FINASTERIDE
  26. TAMSULOSIN [Concomitant]
     Active Substance: TAMSULOSIN
  27. ISOSORBIDE MONONITRATE. [Concomitant]
     Active Substance: ISOSORBIDE MONONITRATE
  28. OMEGA 3 [Concomitant]
     Active Substance: OMEGA-3 FATTY ACIDS
     Dosage: 350-400 MG

REACTIONS (19)
  - Abdominal pain upper [Unknown]
  - Incorrect dose administered [Unknown]
  - Head injury [Unknown]
  - Fatigue [Unknown]
  - Lethargy [Recovering/Resolving]
  - Syncope [Unknown]
  - Benign prostatic hyperplasia [Unknown]
  - Haematuria [Recovering/Resolving]
  - Arrhythmia [Unknown]
  - Off label use [Unknown]
  - Asthenia [Unknown]
  - Diarrhoea [Unknown]
  - Anaemia [Unknown]
  - Dizziness [Unknown]
  - Constipation [Unknown]
  - Retinal haemorrhage [Unknown]
  - Post procedural infection [Unknown]
  - Herpes zoster [Recovered/Resolved]
  - Dyspnoea exertional [Unknown]

NARRATIVE: CASE EVENT DATE: 2016
